FAERS Safety Report 17533746 (Version 2)
Quarter: 2020Q2

REPORT INFORMATION
  Report Type: Report from Study
  Country: AU (occurrence: AU)
  Receive Date: 20200312
  Receipt Date: 20200427
  Transmission Date: 20200713
  Serious: Yes (Hospitalization)
  Sender: FDA-Public Use
  Company Number: AU-ACTELION-A-CH2017-161849

PATIENT
  Age: 56 Year
  Sex: Female
  Weight: 62 kg

DRUGS (4)
  1. VELETRI [Suspect]
     Active Substance: EPOPROSTENOL
     Indication: PULMONARY ARTERIAL HYPERTENSION
     Dosage: 1.5 MG, OD
     Route: 042
  2. SILDENAFIL. [Suspect]
     Active Substance: SILDENAFIL
     Indication: PULMONARY ARTERIAL HYPERTENSION
     Dosage: 50 MG, TID
     Route: 048
     Dates: start: 20161208
  3. OXYGEN. [Concomitant]
     Active Substance: OXYGEN
  4. OPSUMIT [Suspect]
     Active Substance: MACITENTAN
     Indication: PULMONARY ARTERIAL HYPERTENSION
     Dosage: 10 MG, UNK
     Route: 048
     Dates: start: 20140715

REACTIONS (5)
  - Pleural effusion [Recovered/Resolved]
  - Oxygen saturation decreased [Recovered/Resolved]
  - Pulmonary arterial hypertension [Not Recovered/Not Resolved]
  - Cough [Recovered/Resolved]
  - Disease progression [Not Recovered/Not Resolved]

NARRATIVE: CASE EVENT DATE: 20171024
